FAERS Safety Report 6756365-9 (Version None)
Quarter: 2010Q2

REPORT INFORMATION
  Report Type: 
  Country: None (occurrence: None)
  Receive Date: 20100604
  Receipt Date: 20100526
  Transmission Date: 20101027
  Serious: Yes (Other)
  Sender: FDA-Public Use
  Company Number: JP-ROCHE-707086

PATIENT

DRUGS (1)
  1. PEGASYS [Suspect]
     Dosage: DOSAGE IS UNCERTAIN.
     Route: 058

REACTIONS (1)
  - ACUTE MYELOID LEUKAEMIA [None]
